FAERS Safety Report 14028448 (Version 1)
Quarter: 2017Q3

REPORT INFORMATION
  Report Type: Not Available
  Country: US (occurrence: US)
  Receive Date: 20170930
  Receipt Date: 20170930
  Transmission Date: 20171128
  Serious: No
  Sender: FDA-Public Use
  Company Number: US-NEUROCRINE BIOSCIENCES INC.-2017NBI00755

PATIENT
  Age: 68 Year
  Sex: Female

DRUGS (20)
  1. INGREZZA [Suspect]
     Active Substance: VALBENAZINE
     Route: 048
     Dates: start: 20170802
  2. ALPHA LIPOIC ACID [Concomitant]
     Active Substance: .ALPHA.-LIPOIC ACID
  3. AMILORIDE [Concomitant]
     Active Substance: AMILORIDE
  4. EXEMESTANE. [Concomitant]
     Active Substance: EXEMESTANE
  5. MAGNESIUM CITRATE. [Concomitant]
     Active Substance: MAGNESIUM CITRATE
  6. MIRALAX [Concomitant]
     Active Substance: POLYETHYLENE GLYCOL 3350
  7. MIRAPEX [Concomitant]
     Active Substance: PRAMIPEXOLE DIHYDROCHLORIDE
  8. VITAMIN B12 [Concomitant]
     Active Substance: CYANOCOBALAMIN
  9. INGREZZA [Suspect]
     Active Substance: VALBENAZINE
     Indication: PRODUCT USED FOR UNKNOWN INDICATION
     Route: 048
     Dates: start: 20170726, end: 20170801
  10. BELSOMRA [Concomitant]
     Active Substance: SUVOREXANT
  11. CHROMIUM [Concomitant]
     Active Substance: CHROMIC CHLORIDE\CHROMIUM
  12. MULTIVITAMIN [Concomitant]
     Active Substance: VITAMINS
  13. PROBIOTIC [Concomitant]
     Active Substance: PROBIOTICS NOS
  14. SELENIUM [Concomitant]
     Active Substance: SELENIUM
  15. SEROQUEL [Concomitant]
     Active Substance: QUETIAPINE FUMARATE
  16. AMANTADINE. [Concomitant]
     Active Substance: AMANTADINE HYDROCHLORIDE
  17. CLOPIDOGREL [Concomitant]
     Active Substance: CLOPIDOGREL BISULFATE
  18. DOXEPIN [Concomitant]
     Active Substance: DOXEPIN
  19. VITAMIN C [Concomitant]
     Active Substance: ASCORBIC ACID
  20. ZINC. [Concomitant]
     Active Substance: ZINC

REACTIONS (2)
  - Arthralgia [Recovered/Resolved]
  - Pain [Not Recovered/Not Resolved]

NARRATIVE: CASE EVENT DATE: 20170823
